FAERS Safety Report 6925417-2 (Version None)
Quarter: 2010Q3

REPORT INFORMATION
  Report Type: 
  Country: None (occurrence: None)
  Receive Date: 20100816
  Receipt Date: 20100803
  Transmission Date: 20110219
  Serious: Yes (Other)
  Sender: FDA-Public Use
  Company Number: JP-ROCHE-691963

PATIENT
  Sex: Female
  Weight: 46.5 kg

DRUGS (7)
  1. TOCILIZUMAB [Suspect]
     Indication: RHEUMATOID ARTHRITIS
     Route: 041
     Dates: start: 20090304, end: 20090304
  2. TOCILIZUMAB [Suspect]
     Route: 041
     Dates: start: 20090401, end: 20090401
  3. TOCILIZUMAB [Suspect]
     Route: 041
     Dates: start: 20090513, end: 20090513
  4. ANPLAG [Concomitant]
     Dosage: DRUG NAME: ANPLAG(SARPOGRELATE HYDROCHLORIDE)
     Route: 048
  5. ALLEGRA [Concomitant]
     Route: 048
  6. CLEANAL [Concomitant]
     Route: 048
  7. CLARITHROMYCIN [Concomitant]
     Route: 048

REACTIONS (2)
  - POSTOPERATIVE WOUND INFECTION [None]
  - RESPIRATORY TRACT INFECTION [None]
